FAERS Safety Report 16511611 (Version 2)
Quarter: 2019Q3

REPORT INFORMATION
  Report Type: Report from Study
  Country: US (occurrence: US)
  Receive Date: 20190701
  Receipt Date: 20190708
  Transmission Date: 20191004
  Serious: Yes (Death)
  Sender: FDA-Public Use
  Company Number: US-PFIZER INC-2019275212

PATIENT

DRUGS (7)
  1. BORTEZOMIB. [Suspect]
     Active Substance: BORTEZOMIB
     Indication: PLASMA CELL LEUKAEMIA
     Dosage: 1.3 MG/M2, CYCLIC (HIGH-DOSE, DAYS 1, 4, 8, 11, SUBCUTANEOUSLY/ I.V.)
  2. VALACYCLOVIR [VALACICLOVIR HYDROCHLORIDE] [Concomitant]
     Indication: ANTIVIRAL PROPHYLAXIS
  3. CYCLOPHOSPHAMIDE. [Suspect]
     Active Substance: CYCLOPHOSPHAMIDE
     Indication: PLASMA CELL LEUKAEMIA
     Dosage: 350 MG/M2, 2X/DAY (HIGH-DOSE,FOR 28-DAY CYCLES)
     Route: 042
  4. MESNA. [Suspect]
     Active Substance: MESNA
     Indication: PLASMA CELL LEUKAEMIA
     Dosage: 400 MG/M2, 2X/DAY (28-DAY CYCLES, DAYS 1-4)
     Route: 042
  5. DOXORUBICIN HCL [Suspect]
     Active Substance: DOXORUBICIN HYDROCHLORIDE
     Indication: PLASMA CELL LEUKAEMIA
     Dosage: 9 MG/M2, DAILY, (HIGH-DOSE, CONTINUOUS INFUSION, DAYS 1-4)
  6. DEXAMETHASONE. [Suspect]
     Active Substance: DEXAMETHASONE
     Indication: PLASMA CELL LEUKAEMIA
     Dosage: 40 MG, DAILY, (HIGH-DOSE,ON DAYS 1-4, 9-12, 17-20)
     Route: 048
  7. ACYCLOVIR [ACICLOVIR] [Concomitant]
     Active Substance: ACYCLOVIR
     Indication: ANTIVIRAL PROPHYLAXIS

REACTIONS (1)
  - Respiratory failure [Fatal]
